FAERS Safety Report 7616894-2 (Version None)
Quarter: 2011Q3

REPORT INFORMATION
  Report Type: 
  Country: None (occurrence: None)
  Receive Date: 20110718
  Receipt Date: 20110707
  Transmission Date: 20111222
  Serious: No
  Sender: FDA-Public Use
  Company Number: US-BIOGENIDEC-2011BI025277

PATIENT
  Age: 70 Year
  Sex: Female

DRUGS (1)
  1. TYSABRI [Suspect]
     Indication: MULTIPLE SCLEROSIS
     Route: 042

REACTIONS (5)
  - GAIT DISTURBANCE [None]
  - OEDEMA PERIPHERAL [None]
  - STRESS [None]
  - LOSS OF CONTROL OF LEGS [None]
  - VEIN DISCOLOURATION [None]
